FAERS Safety Report 22236586 (Version 1)
Quarter: 2023Q2

REPORT INFORMATION
  Report Type: Spontaneous
  Country: US (occurrence: None)
  Receive Date: 20230420
  Receipt Date: 20230420
  Transmission Date: 20230721
  Serious: No
  Sender: FDA-Public Use
  Company Number: US-ROCHE-3294177

PATIENT
  Age: 76 Year
  Sex: Male

DRUGS (5)
  1. BEVACIZUMAB [Suspect]
     Active Substance: BEVACIZUMAB
     Indication: Neovascular age-related macular degeneration
     Route: 065
  2. RANIBIZUMAB [Suspect]
     Active Substance: RANIBIZUMAB
     Indication: Neovascular age-related macular degeneration
     Route: 065
  3. AFLIBERCEPT [Concomitant]
     Active Substance: AFLIBERCEPT
     Indication: Neovascular age-related macular degeneration
  4. BROLUCIZUMAB [Concomitant]
     Active Substance: BROLUCIZUMAB
     Indication: Neovascular age-related macular degeneration
  5. FARICIMAB [Concomitant]
     Active Substance: FARICIMAB
     Indication: Neovascular age-related macular degeneration

REACTIONS (2)
  - Off label use [Unknown]
  - No adverse event [Unknown]
